FAERS Safety Report 23823140 (Version 2)
Quarter: 2024Q2

REPORT INFORMATION
  Report Type: Spontaneous
  Country: US (occurrence: US)
  Receive Date: 20240507
  Receipt Date: 20240515
  Transmission Date: 20240715
  Serious: No
  Sender: FDA-Public Use
  Company Number: US-OPELLA-2024OHG015292

PATIENT
  Age: 50 Year
  Sex: Female

DRUGS (1)
  1. ALLEGRA D-12 HOUR [Suspect]
     Active Substance: FEXOFENADINE HYDROCHLORIDE\PSEUDOEPHEDRINE HYDROCHLORIDE
     Indication: Seasonal allergy
     Dosage: STRENGTH : 60 MG+120 MG
     Route: 048
     Dates: start: 2020

REACTIONS (1)
  - Product residue present [Recovered/Resolved]

NARRATIVE: CASE EVENT DATE: 20240401
